FAERS Safety Report 6215413-5 (Version None)
Quarter: 2009Q2

REPORT INFORMATION
  Report Type: 
  Country: None (occurrence: None)
  Receive Date: 20090603
  Receipt Date: 20090521
  Transmission Date: 20091009
  Serious: Yes (Hospitalization)
  Sender: FDA-Public Use
  Company Number: 2009AL003457

PATIENT
  Age: 53 Year
  Sex: Male
  Weight: 84.0062 kg

DRUGS (9)
  1. OXYCODONE HCL [Suspect]
     Dosage: Q4H; PO
     Route: 048
     Dates: start: 20080101
  2. SUNITINIB MALATE [Concomitant]
  3. PACLITAXEL [Concomitant]
  4. CARBOPLATIN [Concomitant]
  5. OXYCONTIN [Concomitant]
  6. DURAGESIC-100 [Concomitant]
  7. ATIVAN [Concomitant]
  8. ZOFRAN [Concomitant]
  9. COMPAZINE [Concomitant]

REACTIONS (1)
  - CONFUSIONAL STATE [None]
